FAERS Safety Report 9439841 (Version 1)
Quarter: 2013Q3

REPORT INFORMATION
  Report Type: Spontaneous
  Country: US (occurrence: US)
  Receive Date: 20130805
  Receipt Date: 20130805
  Transmission Date: 20140515
  Serious: No
  Sender: FDA-Public Use
  Company Number: US-PFIZER INC-2013226586

PATIENT
  Age: 49 Year
  Sex: Female
  Weight: 92.1 kg

DRUGS (3)
  1. EFFEXOR XR [Suspect]
     Dosage: UNK
  2. VENLAFAXINE HCL [Suspect]
     Indication: ANXIETY
     Dosage: UNK
  3. VENLAFAXINE HCL [Suspect]
     Indication: DEPRESSION

REACTIONS (2)
  - Drug ineffective [Unknown]
  - Feeling abnormal [Unknown]
